FAERS Safety Report 18122465 (Version 2)
Quarter: 2020Q3

REPORT INFORMATION
  Report Type: Report from Study
  Country: CA (occurrence: CA)
  Receive Date: 20200807
  Receipt Date: 20200907
  Transmission Date: 20201103
  Serious: Yes (Other)
  Sender: FDA-Public Use
  Company Number: CA-SAMSUNG BIOEPIS-SB-2020-24831

PATIENT
  Sex: Female

DRUGS (5)
  1. BRENZYS [Suspect]
     Active Substance: ETANERCEPT
     Route: 058
  2. JAMP METHOTREXATE [Concomitant]
     Indication: PRODUCT USED FOR UNKNOWN INDICATION
     Dosage: UNKNOWN
     Route: 065
  3. SYNTHROID [Concomitant]
     Active Substance: LEVOTHYROXINE SODIUM
     Indication: PRODUCT USED FOR UNKNOWN INDICATION
     Dosage: UNKNOWN
     Route: 065
  4. BRENZYS [Suspect]
     Active Substance: ETANERCEPT
     Indication: RHEUMATOID ARTHRITIS
     Route: 058
     Dates: start: 20191119
  5. BRENZYS [Suspect]
     Active Substance: ETANERCEPT
     Route: 058
     Dates: start: 202002

REACTIONS (2)
  - Off label use [Unknown]
  - Immunosuppression [Unknown]
